FAERS Safety Report 12678147 (Version 2)
Quarter: 2016Q4

REPORT INFORMATION
  Report Type: Spontaneous
  Country: US (occurrence: US)
  Receive Date: 20160823
  Receipt Date: 20161220
  Transmission Date: 20170207
  Serious: Yes (Hospitalization)
  Sender: FDA-Public Use
  Company Number: US-VERTEX PHARMACEUTICALS-2016-004890

PATIENT
  Age: 16 Year
  Sex: Female

DRUGS (25)
  1. MIRALAX [Concomitant]
     Active Substance: POLYETHYLENE GLYCOL 3350
  2. MAXALT [Concomitant]
     Active Substance: RIZATRIPTAN BENZOATE
  3. TYLENOL [Concomitant]
     Active Substance: ACETAMINOPHEN
  4. VITAMIN E [Concomitant]
     Active Substance: .ALPHA.-TOCOPHEROL
  5. CLINDAMYCIN. [Concomitant]
     Active Substance: CLINDAMYCIN
  6. CULTURELLE [Concomitant]
     Active Substance: LACTOBACILLUS RHAMNOSUS
  7. FIORICET [Concomitant]
     Active Substance: ACETAMINOPHEN\BUTALBITAL\CAFFEINE
  8. PULMOZYME [Concomitant]
     Active Substance: DORNASE ALFA
  9. ESTRADIOL. [Concomitant]
     Active Substance: ESTRADIOL
  10. KALYDECO [Suspect]
     Active Substance: IVACAFTOR
     Indication: CYSTIC FIBROSIS
     Dosage: 150 MG, BID
     Route: 048
     Dates: start: 20140227
  11. ZOFRAN [Concomitant]
     Active Substance: ONDANSETRON HYDROCHLORIDE
  12. TRANSDERM SCOP [Concomitant]
     Active Substance: SCOPOLAMINE
  13. CAYSTON [Concomitant]
     Active Substance: AZTREONAM
  14. HYPERSAL [Concomitant]
  15. ZANTAC [Concomitant]
     Active Substance: RANITIDINE HYDROCHLORIDE
  16. CHLORASEPTIC SORE THROAT [Concomitant]
     Active Substance: PHENOL
  17. AQUADEKS [Concomitant]
     Active Substance: MINERALS\VITAMINS
  18. CARAFATE [Concomitant]
     Active Substance: SUCRALFATE
  19. AYR NASAL MIST [Concomitant]
  20. NYSTATIN. [Concomitant]
     Active Substance: NYSTATIN
  21. XOPENEX [Concomitant]
     Active Substance: LEVALBUTEROL HYDROCHLORIDE
  22. ZENPEP [Concomitant]
     Active Substance: PANCRELIPASE AMYLASE\PANCRELIPASE LIPASE\PANCRELIPASE PROTEASE
  23. HUMALOG [Concomitant]
     Active Substance: INSULIN LISPRO
  24. MOTRIN [Concomitant]
     Active Substance: IBUPROFEN
  25. BENADRYL [Concomitant]
     Active Substance: DIPHENHYDRAMINE HYDROCHLORIDE

REACTIONS (2)
  - Chronic sinusitis [Recovered/Resolved]
  - Tracheobronchitis [Recovered/Resolved]

NARRATIVE: CASE EVENT DATE: 201608
